FAERS Safety Report 20085098 (Version 1)
Quarter: 2021Q4

REPORT INFORMATION
  Report Type: Spontaneous
  Country: US (occurrence: US)
  Receive Date: 20211118
  Receipt Date: 20211118
  Transmission Date: 20220304
  Serious: Yes (Other)
  Sender: FDA-Public Use
  Company Number: US-GLAXOSMITHKLINE-USCH2021GSK083389

PATIENT
  Age: 27 Year
  Sex: Male

DRUGS (2)
  1. TERBINAFINE [Suspect]
     Active Substance: TERBINAFINE
     Indication: Nail infection
     Dosage: UNK
  2. SULFAMETHOXAZOLE\TRIMETHOPRIM [Suspect]
     Active Substance: SULFAMETHOXAZOLE\TRIMETHOPRIM
     Indication: Nail infection
     Dosage: UNK

REACTIONS (9)
  - Acute generalised exanthematous pustulosis [Unknown]
  - Rash [Unknown]
  - Pharyngeal enanthema [Unknown]
  - Genital rash [Unknown]
  - Rash pustular [Unknown]
  - Blister [Unknown]
  - Pain [Unknown]
  - Skin lesion [Unknown]
  - Skin oedema [Unknown]
